FAERS Safety Report 22393151 (Version 2)
Quarter: 2023Q2

REPORT INFORMATION
  Report Type: Spontaneous
  Country: US (occurrence: US)
  Receive Date: 20230601
  Receipt Date: 20230607
  Transmission Date: 20230722
  Serious: Yes (Hospitalization)
  Sender: FDA-Public Use
  Company Number: US-TEVA-2023-US-2891147

PATIENT
  Age: 61 Year
  Sex: Female

DRUGS (11)
  1. METHOTREXATE [Suspect]
     Active Substance: METHOTREXATE
     Indication: Rheumatoid arthritis
     Route: 065
  2. DEXAMETHASONE [Suspect]
     Active Substance: DEXAMETHASONE
     Indication: Haemophagocytic lymphohistiocytosis
     Route: 065
  3. INFLIXIMAB [Suspect]
     Active Substance: INFLIXIMAB
     Indication: Rheumatoid arthritis
     Route: 065
  4. AMPHOTERICIN B [Suspect]
     Active Substance: AMPHOTERICIN B
     Indication: Histoplasmosis
     Route: 042
  5. ITRACONAZOLE [Suspect]
     Active Substance: ITRACONAZOLE
     Indication: Histoplasmosis
     Route: 065
  6. IMMUNE GLOBULIN NOS [Suspect]
     Active Substance: IMMUNE GLOBULIN NOS
     Indication: Haemophagocytic lymphohistiocytosis
     Dosage: 0.4 G/KG
     Route: 042
  7. PIPERACILLIN AND TAZOBACTAM [Concomitant]
     Active Substance: PIPERACILLIN SODIUM\TAZOBACTAM SODIUM
     Indication: Prophylaxis
     Route: 065
  8. DOXYCYCLINE [Concomitant]
     Active Substance: DOXYCYCLINE
     Indication: Prophylaxis
     Route: 065
  9. VANCOMYCIN [Concomitant]
     Active Substance: VANCOMYCIN
     Indication: Prophylaxis
     Route: 065
  10. MICAFUNGIN [Concomitant]
     Active Substance: MICAFUNGIN SODIUM
     Indication: Prophylaxis
     Route: 065
  11. OSELTAMIVIR [Concomitant]
     Active Substance: OSELTAMIVIR
     Indication: Prophylaxis
     Route: 065

REACTIONS (6)
  - Histoplasmosis disseminated [Unknown]
  - Toxicity to various agents [Unknown]
  - Rash [Unknown]
  - Renal injury [Unknown]
  - Thrombocytopenia [Unknown]
  - Drug ineffective [Unknown]
